FAERS Safety Report 14698202 (Version 1)
Quarter: 2018Q1

REPORT INFORMATION
  Report Type: Spontaneous
  Country: FR (occurrence: FR)
  Receive Date: 20180330
  Receipt Date: 20180330
  Transmission Date: 20180509
  Serious: Yes (Life-Threatening)
  Sender: FDA-Public Use
  Company Number: FR-ASTRAZENECA-2018SE38064

PATIENT
  Age: 62 Year
  Sex: Female
  Weight: 99 kg

DRUGS (4)
  1. VIMPAT [Concomitant]
     Active Substance: LACOSAMIDE
     Dates: start: 20180228, end: 20180302
  2. LOXEN (NICARDIPINE HYDROCHLORIDE) [Concomitant]
     Active Substance: NICARDIPINE HYDROCHLORIDE
  3. BRILIQUE [Suspect]
     Active Substance: TICAGRELOR
     Indication: PRODUCT USED FOR UNKNOWN INDICATION
     Route: 048
     Dates: start: 20180206, end: 20180226
  4. RAMIPRIL. [Suspect]
     Active Substance: RAMIPRIL
     Indication: PRODUCT USED FOR UNKNOWN INDICATION
     Route: 048
     Dates: start: 20180221

REACTIONS (2)
  - Syncope [Recovered/Resolved]
  - Sinus node dysfunction [Not Recovered/Not Resolved]

NARRATIVE: CASE EVENT DATE: 20180225
